FAERS Safety Report 5411177-3 (Version None)
Quarter: 2007Q3

REPORT INFORMATION
  Report Type: 
  Country: None (occurrence: None)
  Receive Date: 20070810
  Receipt Date: 20070806
  Transmission Date: 20080115
  Serious: Yes (Hospitalization)
  Sender: FDA-Public Use
  Company Number: A0668398A

PATIENT
  Age: 38 Year
  Sex: Male

DRUGS (1)
  1. ARIXTRA [Suspect]
     Indication: FACTOR V LEIDEN MUTATION
     Dosage: 2.5MG PER DAY
     Route: 058
     Dates: start: 20030101

REACTIONS (4)
  - DRUG INEFFECTIVE [None]
  - INJECTION SITE PAIN [None]
  - STOMACH DISCOMFORT [None]
  - THROMBOSIS [None]
